FAERS Safety Report 7505943-8 (Version None)
Quarter: 2011Q2

REPORT INFORMATION
  Report Type: 
  Country: None (occurrence: None)
  Receive Date: 20110526
  Receipt Date: 20100601
  Transmission Date: 20111010
  Serious: Yes (Hospitalization)
  Sender: FDA-Public Use
  Company Number: CA-ROCHE-698706

PATIENT
  Sex: Male

DRUGS (8)
  1. PREDNISONE [Suspect]
     Indication: SYSTEMIC LUPUS ERYTHEMATOSUS
     Dosage: BACKGROUND THERAPY, FORM AS PER PROTOCOL
     Route: 048
     Dates: start: 20090213, end: 20100413
  2. BENAZEPRIL HYDROCHLORIDE [Concomitant]
     Dates: start: 20090220
  3. BLINDED ABATACEPT [Suspect]
     Indication: SYSTEMIC LUPUS ERYTHEMATOSUS
     Dosage: DOSE BLINDED
     Route: 042
  4. MYCOPHENOLATE MOFETIL [Suspect]
     Indication: SYSTEMIC LUPUS ERYTHEMATOSUS
     Dosage: FORM AS PER PROTOCOL
     Route: 048
     Dates: start: 20100407, end: 20100413
  5. NORVASC [Concomitant]
     Dates: start: 20100112
  6. OMEPRAZOLE [Concomitant]
     Dates: start: 20100318
  7. ABATACEPT [Suspect]
     Indication: SYSTEMIC LUPUS ERYTHEMATOSUS
     Dosage: FREQUENCY AS PER PROTOCOL
     Route: 042
     Dates: start: 20100407, end: 20100407
  8. CALTRATE + D [Concomitant]
     Dates: start: 20090226

REACTIONS (1)
  - VENTRICULAR EXTRASYSTOLES [None]
